FAERS Safety Report 6743578-5 (Version None)
Quarter: 2010Q2

REPORT INFORMATION
  Report Type: 
  Country: None (occurrence: None)
  Receive Date: 20100527
  Receipt Date: 20100520
  Transmission Date: 20101027
  Serious: No
  Sender: FDA-Public Use
  Company Number: FR-ABBOTT-10P-056-0631447-00

PATIENT
  Sex: Female
  Weight: 59 kg

DRUGS (2)
  1. HUMIRA [Suspect]
     Indication: RHEUMATOID ARTHRITIS
     Dosage: ONE SINGLE INJECTION
     Route: 058
     Dates: start: 20100220, end: 20100220
  2. NOVATREX [Concomitant]
     Indication: RHEUMATOID ARTHRITIS
     Route: 048
     Dates: start: 20090715

REACTIONS (4)
  - CIRCUMORAL OEDEMA [None]
  - ERYTHEMA [None]
  - INJECTION SITE REACTION [None]
  - PRURIGO [None]
